FAERS Safety Report 9524105 (Version 3)
Quarter: 2013Q4

REPORT INFORMATION
  Report Type: Spontaneous
  Country: DE (occurrence: DE)
  Receive Date: 20130916
  Receipt Date: 20131107
  Transmission Date: 20140711
  Serious: Yes (Other)
  Sender: FDA-Public Use
  Company Number: DE-JNJFOC-20130907702

PATIENT
  Age: 66 Year
  Sex: Female
  Weight: 64 kg

DRUGS (11)
  1. XARELTO [Suspect]
     Indication: THROMBOSIS PROPHYLAXIS
     Route: 048
     Dates: start: 20130701, end: 20130808
  2. HERCEPTIN [Concomitant]
     Indication: BREAST CANCER METASTATIC
     Route: 065
     Dates: start: 201102
  3. PANTOPRAZOLE [Concomitant]
     Route: 065
  4. VALORON N [Concomitant]
     Route: 065
     Dates: end: 20130730
  5. FERRO SANOL [Concomitant]
     Route: 065
  6. PARACETAMOL [Concomitant]
     Route: 065
  7. INDOMED [Concomitant]
     Route: 065
  8. PANTOZOL [Concomitant]
     Route: 065
  9. NALOXONE HYDROCHLORIDE [Concomitant]
     Dosage: 8 MG OF NALOXON HYDROCHLORIDE + 100 MG TILIDINE HYDROCHLORIDE
     Route: 065
  10. METAMIZOL [Concomitant]
     Route: 065
  11. VALORON N [Concomitant]
     Route: 065

REACTIONS (6)
  - Drug-induced liver injury [Unknown]
  - Drug-induced liver injury [Unknown]
  - Toxicity to various agents [Unknown]
  - Hepatic enzyme increased [Unknown]
  - Jaundice [Unknown]
  - Pruritus [Unknown]
